FAERS Safety Report 14535093 (Version 2)
Quarter: 2018Q1

REPORT INFORMATION
  Report Type: Spontaneous
  Country: ES (occurrence: ES)
  Receive Date: 20180215
  Receipt Date: 20180216
  Transmission Date: 20180509
  Serious: Yes (Life-Threatening, Hospitalization)
  Sender: FDA-Public Use
  Company Number: ES-ROCHE-2067674

PATIENT
  Age: 45 Year
  Sex: Male

DRUGS (9)
  1. TRANKIMAZIN [Suspect]
     Active Substance: ALPRAZOLAM
     Indication: PRODUCT USED FOR UNKNOWN INDICATION
     Dosage: LAST DOSE PRIROR TO ONSET OF EVENT 23/NOV/2016
     Route: 048
     Dates: start: 20161123
  2. DAPAROX [Suspect]
     Active Substance: PAROXETINE HYDROCHLORIDE
     Indication: PRODUCT USED FOR UNKNOWN INDICATION
     Dosage: -LAST DOSE PRIROR TO ONSET OF EVENT 23/NOV/2016
     Route: 048
     Dates: start: 20161123
  3. ORFIDAL [Suspect]
     Active Substance: LORAZEPAM
     Indication: PRODUCT USED FOR UNKNOWN INDICATION
     Dosage: -LAST DOSE PRIROR TO ONSET OF EVENT 23/NOV/2016
     Route: 048
     Dates: start: 20161123
  4. VENLAFAXINA [Suspect]
     Active Substance: VENLAFAXINE HYDROCHLORIDE
     Indication: PRODUCT USED FOR UNKNOWN INDICATION
     Dosage: LAST DOSE PRIROR TO ONSET OF EVENT 23/NOV/2016
     Route: 048
     Dates: start: 20161123
  5. DEPRAX (SPAIN) [Suspect]
     Active Substance: TRAZODONE HYDROCHLORIDE
     Indication: PRODUCT USED FOR UNKNOWN INDICATION
     Dosage: -LAST DOSE PRIROR TO ONSET OF EVENT 23/NOV/2016
     Route: 048
     Dates: start: 20161123
  6. PARACETAMOL [Suspect]
     Active Substance: ACETAMINOPHEN
     Indication: PRODUCT USED FOR UNKNOWN INDICATION
     Dosage: -LAST DOSE PRIROR TO ONSET OF EVENT 23/NOV/2016
     Route: 065
     Dates: start: 20161123
  7. LEXATIN(BROMAZEPAM) [Suspect]
     Active Substance: BROMAZEPAM
     Indication: PRODUCT USED FOR UNKNOWN INDICATION
     Dosage: LAST DOSE PRIROR TO ONSET OF EVENT 23/NOV/2016
     Route: 048
     Dates: start: 20161123
  8. IBUPROFENO [Suspect]
     Active Substance: IBUPROFEN
     Indication: PRODUCT USED FOR UNKNOWN INDICATION
     Dosage: LAST DOSE PRIROR TO ONSET OF EVENT 23/NOV/2016
     Route: 048
     Dates: start: 20161123
  9. DIAZEPAM. [Suspect]
     Active Substance: DIAZEPAM
     Indication: PRODUCT USED FOR UNKNOWN INDICATION
     Dosage: LAST DOSE PRIROR TO ONSET OF EVENT 23/NOV/2016
     Route: 048
     Dates: start: 20161123

REACTIONS (2)
  - Suicide attempt [Recovered/Resolved]
  - Altered state of consciousness [Recovered/Resolved]

NARRATIVE: CASE EVENT DATE: 20161123
